FAERS Safety Report 21046248 (Version 2)
Quarter: 2022Q3

REPORT INFORMATION
  Report Type: Report from Study
  Country: US (occurrence: US)
  Receive Date: 20220706
  Receipt Date: 20220727
  Transmission Date: 20221026
  Serious: Yes (Death, Life-Threatening, Hospitalization, Other)
  Sender: FDA-Public Use
  Company Number: US-BRISTOL-MYERS SQUIBB COMPANY-2022-047337

PATIENT
  Age: 75 Year
  Sex: Female
  Weight: 57 kg

DRUGS (44)
  1. REVLIMID [Suspect]
     Active Substance: LENALIDOMIDE
     Indication: Product used for unknown indication
     Dosage: 21 DAYS ON, 7 DAYS OFF
     Route: 048
     Dates: start: 20111014
  2. REVLIMID [Suspect]
     Active Substance: LENALIDOMIDE
     Dosage: EVERY OTHER DAY FOR 21 DAYS
     Route: 048
     Dates: start: 20111111, end: 20120513
  3. REVLIMID [Suspect]
     Active Substance: LENALIDOMIDE
     Dosage: 28 DAYS (CONTINUOUS)
     Route: 048
     Dates: start: 20121023, end: 20130117
  4. REVLIMID [Suspect]
     Active Substance: LENALIDOMIDE
     Route: 048
     Dates: start: 20130118, end: 20130527
  5. REVLIMID [Suspect]
     Active Substance: LENALIDOMIDE
     Dosage: 21 DAYS ON, 7 DAYS OFF
     Route: 048
     Dates: start: 20121023
  6. REVLIMID [Suspect]
     Active Substance: LENALIDOMIDE
     Dosage: 28 DAYS (CONTINUOUS)
     Route: 048
     Dates: start: 20130930, end: 20131024
  7. REVLIMID [Suspect]
     Active Substance: LENALIDOMIDE
     Dosage: 21 DAYS ON, 7 DAYS OFF
     Route: 048
     Dates: start: 20131025, end: 20131121
  8. REVLIMID [Suspect]
     Active Substance: LENALIDOMIDE
     Route: 048
     Dates: start: 20131121, end: 20131217
  9. REVLIMID [Suspect]
     Active Substance: LENALIDOMIDE
     Route: 048
     Dates: start: 20131218, end: 20140502
  10. REVLIMID [Suspect]
     Active Substance: LENALIDOMIDE
     Dosage: 28 DAYS (CONTINUOUS)
     Route: 048
     Dates: start: 20171019, end: 20180103
  11. REVLIMID [Suspect]
     Active Substance: LENALIDOMIDE
     Dosage: 21 DAYS ON, 7 DAYS OFF
     Route: 048
     Dates: start: 20190615, end: 20190620
  12. POMALIDOMIDE [Suspect]
     Active Substance: POMALIDOMIDE
     Indication: Product used for unknown indication
     Dosage: DAILY, 3 WEEKS ON 1 WEEK OFF
     Route: 048
     Dates: start: 20180125, end: 20180215
  13. POMALIDOMIDE [Suspect]
     Active Substance: POMALIDOMIDE
     Dosage: 21 DAYS ON FOLLOWED BY 7 DAYS OFF
     Route: 048
     Dates: start: 20220225, end: 20220408
  14. VELCADE [Suspect]
     Active Substance: BORTEZOMIB
     Indication: Plasma cell myeloma
     Dosage: 2X WEEKLY, DAYS 1 AND 4 Q 7D, 1 WK OFF Q 14D
     Route: 058
     Dates: start: 20111014, end: 20111014
  15. VELCADE [Suspect]
     Active Substance: BORTEZOMIB
     Dosage: 1X WEEKLY, DAY 1 Q 7 DAYS, 1 WK OFF Q 14D
     Route: 042
     Dates: start: 20111104, end: 20120507
  16. VELCADE [Suspect]
     Active Substance: BORTEZOMIB
     Dosage: FREQ: 3 WEEKS ON, 1 WEEK OFF
     Route: 058
     Dates: start: 20220422, end: 20220429
  17. VELCADE [Suspect]
     Active Substance: BORTEZOMIB
     Dosage: WEEKLY 3 ON 1 OFF
     Route: 058
     Dates: start: 20170830, end: 20180103
  18. VELCADE [Suspect]
     Active Substance: BORTEZOMIB
     Route: 058
     Dates: start: 20220422
  19. MELPHALAN [Suspect]
     Active Substance: MELPHALAN
     Indication: Product used for unknown indication
     Dosage: DAYS 1-4 EVERY 6 WEEKS
     Route: 048
     Dates: start: 20191016, end: 20220120
  20. MELPHALAN [Suspect]
     Active Substance: MELPHALAN
     Dosage: OVER 2 DAYS
     Route: 042
     Dates: start: 20120703, end: 20120704
  21. MELPHALAN [Suspect]
     Active Substance: MELPHALAN
     Dosage: QD, DAYS 1-4, Q 6 WEEKS
     Route: 048
     Dates: start: 20190615, end: 20190730
  22. MELPHALAN [Suspect]
     Active Substance: MELPHALAN
     Dosage: QD DAYS 1-4, Q 6 WEEKS
     Route: 048
     Dates: start: 20190903, end: 20190906
  23. CYTOXAN [Suspect]
     Active Substance: CYCLOPHOSPHAMIDE
     Indication: Product used for unknown indication
     Dosage: ONE TIME
     Route: 042
     Dates: start: 20120614, end: 20120614
  24. CYTOXAN [Suspect]
     Active Substance: CYCLOPHOSPHAMIDE
     Route: 042
     Dates: start: 20180524, end: 20180815
  25. CYTOXAN [Suspect]
     Active Substance: CYCLOPHOSPHAMIDE
     Route: 042
     Dates: start: 20180816, end: 20190509
  26. DOXORUBICIN HYDROCHLORIDE [Suspect]
     Active Substance: DOXORUBICIN HYDROCHLORIDE
     Indication: Product used for unknown indication
     Dosage: EVERY 28 DAYS
     Route: 042
     Dates: start: 20220422, end: 20220429
  27. DEXAMETHASONE [Suspect]
     Active Substance: DEXAMETHASONE
     Indication: Product used for unknown indication
     Route: 048
     Dates: start: 20111014, end: 20120513
  28. DEXAMETHASONE [Suspect]
     Active Substance: DEXAMETHASONE
     Route: 048
  29. DEXAMETHASONE [Suspect]
     Active Substance: DEXAMETHASONE
     Route: 048
     Dates: start: 20180125
  30. DEXAMETHASONE [Suspect]
     Active Substance: DEXAMETHASONE
     Route: 048
     Dates: start: 20180524, end: 20190509
  31. DEXAMETHASONE [Suspect]
     Active Substance: DEXAMETHASONE
     Dosage: QD WITH MELPHALAN, DAYS 1-4 WITH MELPHALAN
     Route: 048
     Dates: start: 20190615, end: 20190618
  32. DEXAMETHASONE [Suspect]
     Active Substance: DEXAMETHASONE
     Dosage: QD WITH MELPHALAN, DAYS 1-4
     Route: 048
     Dates: start: 20190727, end: 20190730
  33. DEXAMETHASONE [Suspect]
     Active Substance: DEXAMETHASONE
     Dosage: QD W/O MELPHALAN, 3 WEEKS ON 3 WEEKS OFF
     Route: 048
     Dates: start: 20190731, end: 20190902
  34. DEXAMETHASONE [Suspect]
     Active Substance: DEXAMETHASONE
     Dosage: QD WITH MELPHALAN, DAYS 1-4 WITH MELPHALAN
     Route: 048
     Dates: start: 20190903, end: 20190906
  35. DEXAMETHASONE [Suspect]
     Active Substance: DEXAMETHASONE
     Dosage: DAYS 1-4 WITH MELPHALAN
     Route: 048
     Dates: start: 20191016, end: 20191019
  36. DEXAMETHASONE [Suspect]
     Active Substance: DEXAMETHASONE
     Dosage: ONCE A WEEK ON MELPHALAN OFF WEEKS
     Route: 048
     Dates: start: 20191023, end: 20200120
  37. KYPROLIS [Suspect]
     Active Substance: CARFILZOMIB
     Indication: Product used for unknown indication
     Route: 042
     Dates: start: 20210917, end: 20220211
  38. KYPROLIS [Suspect]
     Active Substance: CARFILZOMIB
     Dosage: 2 CONSECUTIVE DAYS PER WEEK FOR 3 WEEKS, 1 WEEK OFF
     Route: 042
     Dates: start: 20220225, end: 20220408
  39. KYPROLIS [Suspect]
     Active Substance: CARFILZOMIB
     Route: 042
     Dates: start: 20180524, end: 20190509
  40. ISATUXIMAB [Suspect]
     Active Substance: ISATUXIMAB
     Indication: Product used for unknown indication
     Route: 042
  41. DOXYCYCLINE HYDROCHLORIDE [Suspect]
     Active Substance: DOXYCYCLINE HYDROCHLORIDE
     Indication: Plasma cell myeloma
     Dosage: FREQ: 3 WEEKS ON, 1 WEEK OFF
     Route: 042
     Dates: start: 20220422, end: 20220422
  42. NINLARO [Concomitant]
     Active Substance: IXAZOMIB CITRATE
     Indication: Product used for unknown indication
     Dosage: DAYS 1, 8 AND 15 Q 28D
     Route: 048
     Dates: start: 20191009, end: 20191015
  43. NINLARO [Concomitant]
     Active Substance: IXAZOMIB CITRATE
     Dosage: DAYS 1, 8 AND 15 Q 28D
     Route: 048
     Dates: start: 20191016, end: 20200120
  44. DARZALEX [Concomitant]
     Active Substance: DARATUMUMAB
     Indication: Product used for unknown indication
     Route: 042
     Dates: start: 20180123, end: 20180524

REACTIONS (5)
  - Cardiac failure congestive [Fatal]
  - Sepsis [Recovered/Resolved]
  - Malignant neoplasm progression [Unknown]
  - Light chain analysis increased [Unknown]
  - Pneumonia [Recovered/Resolved]

NARRATIVE: CASE EVENT DATE: 20220504
